FAERS Safety Report 4722837-1 (Version None)
Quarter: 2005Q3

REPORT INFORMATION
  Report Type: 
  Country: None (occurrence: None)
  Receive Date: 20050722
  Receipt Date: 20050720
  Transmission Date: 20060218
  Serious: Yes (Other)
  Sender: FDA-Public Use
  Company Number: US-GLAXOSMITHKLINE-A0567064A

PATIENT
  Age: 54 Year
  Sex: Female

DRUGS (3)
  1. WELLBUTRIN XL [Suspect]
     Indication: ANXIETY
     Dosage: 150MG PER DAY
     Route: 048
     Dates: start: 20050719
  2. ALLERGEN [Suspect]
  3. NO CONCURRENT MEDICATION [Concomitant]

REACTIONS (3)
  - BLISTER [None]
  - HAEMORRHAGE [None]
  - LOCAL SWELLING [None]
